FAERS Safety Report 13088004 (Version 1)
Quarter: 2017Q1

REPORT INFORMATION
  Report Type: Spontaneous
  Country: TR (occurrence: TR)
  Receive Date: 20170105
  Receipt Date: 20170105
  Transmission Date: 20170428
  Serious: Yes (Other)
  Sender: FDA-Public Use
  Company Number: TR-CELGENEUS-TUR-2016126706

PATIENT

DRUGS (3)
  1. BORTEZOMIB [Suspect]
     Active Substance: BORTEZOMIB
     Indication: PLASMA CELL MYELOMA
     Route: 065
  2. REVLIMID [Suspect]
     Active Substance: LENALIDOMIDE
     Indication: PLASMA CELL MYELOMA
     Route: 048
  3. DEXAMETHASONE. [Suspect]
     Active Substance: DEXAMETHASONE
     Indication: PLASMA CELL MYELOMA
     Route: 065

REACTIONS (48)
  - Neutropenia [Unknown]
  - Anaemia [Unknown]
  - Dysgeusia [Unknown]
  - Neuropathy peripheral [Unknown]
  - Rash [Unknown]
  - Cerebrovascular accident [Unknown]
  - Thrombocytopenia [Unknown]
  - Pruritus [Unknown]
  - Hypokalaemia [Unknown]
  - Oedema [Unknown]
  - Gastrointestinal haemorrhage [Unknown]
  - Pulmonary embolism [Unknown]
  - Injection site reaction [Unknown]
  - Diarrhoea [Unknown]
  - Hyponatraemia [Unknown]
  - Perforation [Unknown]
  - Hiccups [Unknown]
  - Proteinuria [Unknown]
  - Decreased appetite [Unknown]
  - Hypocalcaemia [Unknown]
  - Subdural haematoma [Unknown]
  - Constipation [Unknown]
  - Pneumonia [Unknown]
  - Insomnia [Unknown]
  - Angina pectoris [Unknown]
  - Transient ischaemic attack [Unknown]
  - Liver function test abnormal [Unknown]
  - Paraplegia [Unknown]
  - Myopathy [Unknown]
  - Deafness [Unknown]
  - Fatigue [Unknown]
  - Cellulitis [Unknown]
  - Tooth abscess [Unknown]
  - Depression [Unknown]
  - Hyperkalaemia [Unknown]
  - Haematuria [Unknown]
  - Urinary tract infection [Unknown]
  - Dizziness [Unknown]
  - Headache [Unknown]
  - Hyperglycaemia [Unknown]
  - Haemoptysis [Unknown]
  - Dry eye [Unknown]
  - Pyrexia [Unknown]
  - Infection [Unknown]
  - Herpes zoster [Unknown]
  - Upper respiratory tract infection [Unknown]
  - Osteonecrosis of jaw [Unknown]
  - Osteonecrosis [Unknown]
